FAERS Safety Report 5259568-8 (Version None)
Quarter: 2007Q1

REPORT INFORMATION
  Report Type: 
  Country: None (occurrence: None)
  Receive Date: 20061117
  Receipt Date: 20060626
  Transmission Date: 20070707
  Serious: Yes (Other)
  Sender: FDA-Public Use
  Company Number: US-JNJFOC-20060602086

PATIENT
  Age: 58 Year
  Sex: Female
  Weight: 81.6475 kg

DRUGS (7)
  1. LEVAQUIN [Suspect]
     Indication: SINUSITIS
     Dosage: 500 MG, 1 IN 1 DAY, ORAL
     Route: 048
     Dates: start: 20060310, end: 20060317
  2. SYNTHROID [Concomitant]
  3. FEMIRON (FERROUS FUMARATE) [Concomitant]
  4. HYDROCHLOROTHIAZIDE [Concomitant]
  5. NIFEDICAL (NIFEDIPINE) [Concomitant]
  6. PROTONIX [Concomitant]
  7. LEXAPRO [Concomitant]

REACTIONS (4)
  - HALLUCINATION [None]
  - HYPERHIDROSIS [None]
  - MYALGIA [None]
  - PALPITATIONS [None]
